FAERS Safety Report 5145607-1 (Version None)
Quarter: 2006Q4

REPORT INFORMATION
  Report Type: 
  Country: None (occurrence: None)
  Receive Date: 20061102
  Receipt Date: 20061020
  Transmission Date: 20070319
  Serious: Yes (Other)
  Sender: FDA-Public Use
  Company Number: 15030

PATIENT
  Sex: Female

DRUGS (1)
  1. PACLITAXEL [Suspect]

REACTIONS (3)
  - BONE PAIN [None]
  - DRUG INEFFECTIVE [None]
  - INFUSION RELATED REACTION [None]
